FAERS Safety Report 19617763 (Version 2)
Quarter: 2021Q3

REPORT INFORMATION
  Report Type: Spontaneous
  Country: BR (occurrence: BR)
  Receive Date: 20210727
  Receipt Date: 20210805
  Transmission Date: 20211014
  Serious: Yes (Hospitalization)
  Sender: FDA-Public Use
  Company Number: BR-BIOMARINAP-BR-2021-137668

PATIENT
  Age: 22 Year
  Sex: Female

DRUGS (2)
  1. COUMARIN [Suspect]
     Active Substance: COUMARIN
     Indication: PRODUCT USED FOR UNKNOWN INDICATION
     Dosage: UNK
     Route: 065
  2. NAGLAZYME [Suspect]
     Active Substance: GALSULFASE
     Indication: MUCOPOLYSACCHARIDOSIS VI
     Dosage: UNK, QW
     Route: 042

REACTIONS (3)
  - Abdominal distension [Recovered/Resolved]
  - Intra-abdominal haematoma [Recovered/Resolved]
  - Wound dehiscence [Recovering/Resolving]
